FAERS Safety Report 6354670-1 (Version None)
Quarter: 2009Q3

REPORT INFORMATION
  Report Type: 
  Country: None (occurrence: None)
  Receive Date: 20090909
  Receipt Date: 20090827
  Transmission Date: 20100115
  Serious: Yes (Hospitalization, Disabling)
  Sender: FDA-Public Use
  Company Number: 2008-03253

PATIENT
  Age: 44 Year
  Sex: Male
  Weight: 80 kg

DRUGS (3)
  1. VELCADE [Suspect]
     Indication: MULTIPLE MYELOMA
     Dosage: 2.6 MG, INTRAVENOUS
     Route: 042
     Dates: start: 20080826, end: 20080829
  2. CYCLOPHOSPHAMIDE [Suspect]
     Indication: MULTIPLE MYELOMA
     Dosage: 1854 MG, INTRAVENOUS
     Route: 042
     Dates: start: 20080826, end: 20080826
  3. DEXAMETHASONE TAB [Suspect]
     Indication: MULTIPLE MYELOMA
     Dosage: 40 MG, ORAL
     Route: 048
     Dates: start: 20080826, end: 20080829

REACTIONS (15)
  - ABASIA [None]
  - CONCOMITANT DISEASE PROGRESSION [None]
  - CSF TEST ABNORMAL [None]
  - FALL [None]
  - IATROGENIC INJURY [None]
  - LEUKOPENIA [None]
  - NEUROTOXICITY [None]
  - OSTEOLYSIS [None]
  - PARAPARESIS [None]
  - PLASMACYTOMA [None]
  - PROCEDURAL COMPLICATION [None]
  - SENSORY DISTURBANCE [None]
  - SPINAL CORD COMPRESSION [None]
  - SPINAL CORD INFARCTION [None]
  - VASCULAR INJURY [None]
